FAERS Safety Report 25721208 (Version 1)
Quarter: 2025Q3

REPORT INFORMATION
  Report Type: Spontaneous
  Country: KR (occurrence: KR)
  Receive Date: 20250825
  Receipt Date: 20250825
  Transmission Date: 20251021
  Serious: Yes (Other)
  Sender: REGENERON
  Company Number: KR-BAYER-2025A110889

PATIENT
  Age: 73 Year
  Sex: Female

DRUGS (3)
  1. EYLEA [Suspect]
     Active Substance: AFLIBERCEPT
     Indication: Neovascular age-related macular degeneration
     Dosage: UNK-RIGHT EYE
  2. EYLEA [Suspect]
     Active Substance: AFLIBERCEPT
  3. EYLEA [Suspect]
     Active Substance: AFLIBERCEPT

REACTIONS (3)
  - Subretinal fluid [Recovered/Resolved]
  - Detachment of retinal pigment epithelium [Recovering/Resolving]
  - Intraocular pressure increased [Recovered/Resolved]
